FAERS Safety Report 10935528 (Version 1)
Quarter: 2015Q1

REPORT INFORMATION
  Report Type: Spontaneous
  Country: US (occurrence: US)
  Receive Date: 20150320
  Receipt Date: 20150320
  Transmission Date: 20150721
  Serious: No
  Sender: FDA-Public Use
  Company Number: US-GLAXOSMITHKLINE-US2015GSK013634

PATIENT
  Sex: Female
  Weight: 61.22 kg

DRUGS (10)
  1. XANAX [Concomitant]
     Active Substance: ALPRAZOLAM
  2. ESTRACE TABLET [Concomitant]
  3. VITAMIN D3 TABLET [Concomitant]
     Dosage: UNK
  4. COREG CR [Concomitant]
     Active Substance: CARVEDILOL PHOSPHATE
  5. VESICARE [Concomitant]
     Active Substance: SOLIFENACIN SUCCINATE
  6. ZETIA TABLET [Concomitant]
  7. HALCION TABLET [Concomitant]
  8. IMODIUM [Concomitant]
     Active Substance: LOPERAMIDE HYDROCHLORIDE
  9. ACIDOPHILUS CAPSULE [Concomitant]
  10. VOTRIENT [Suspect]
     Active Substance: PAZOPANIB HYDROCHLORIDE
     Indication: METASTASES TO LUNG
     Dosage: 800 MG, 1D
     Route: 048
     Dates: start: 201412

REACTIONS (1)
  - Liver disorder [Unknown]
